FAERS Safety Report 5008169-5 (Version None)
Quarter: 2006Q2

REPORT INFORMATION
  Report Type: 
  Country: None (occurrence: None)
  Receive Date: 20060404
  Receipt Date: 20051101
  Transmission Date: 20061013
  Serious: Yes (Hospitalization, Other)
  Sender: FDA-Public Use
  Company Number: 2005151019

PATIENT
  Age: 8 Year
  Sex: Female
  Weight: 19.9583 kg

DRUGS (3)
  1. GEODON [Suspect]
     Indication: BIPOLAR DISORDER
     Dosage: 120 MG (60 MG, 2 IN 1 D),
     Dates: start: 20050801, end: 20050826
  2. CONCERTA [Concomitant]
  3. CLONIDINE [Concomitant]

REACTIONS (2)
  - DYSTONIA [None]
  - MANIA [None]
